FAERS Safety Report 7564519-7 (Version None)
Quarter: 2011Q2

REPORT INFORMATION
  Report Type: 
  Country: None (occurrence: None)
  Receive Date: 20110622
  Receipt Date: 20100701
  Transmission Date: 20111010
  Serious: Yes (Other)
  Sender: FDA-Public Use
  Company Number: US-MYLANLABS-2010S1006527

PATIENT
  Age: 25 Year
  Sex: Male
  Weight: 64.86 kg

DRUGS (18)
  1. OMEPRAZOLE [Concomitant]
     Dates: start: 20100320
  2. MIRALAX [Concomitant]
     Dates: start: 20100320
  3. DIVALPROEX SODIUM [Concomitant]
     Dates: start: 20100320, end: 20100421
  4. DIVALPROEX SODIUM [Concomitant]
     Dates: start: 20100422, end: 20100509
  5. LEVETIRACETAM [Concomitant]
     Dates: start: 20100320, end: 20100519
  6. LEVETIRACETAM [Concomitant]
     Dates: start: 20100520
  7. PHENYTOIN [Concomitant]
     Dates: start: 20100324, end: 20100520
  8. DIAZEPAM [Concomitant]
     Dates: start: 20100320
  9. PHENYTOIN [Concomitant]
     Dates: start: 20100521
  10. TEMAZEPAM [Concomitant]
     Indication: INSOMNIA
     Dates: start: 20100320
  11. DIVALPROEX SODIUM [Concomitant]
     Dates: start: 20100422, end: 20100509
  12. DIVALPROEX SODIUM [Concomitant]
     Dates: start: 20100510, end: 20100520
  13. CLOZAPINE [Suspect]
     Indication: PSYCHOTIC DISORDER
     Route: 048
     Dates: start: 20100406, end: 20100414
  14. PHENYTOIN [Concomitant]
     Dates: start: 20100320, end: 20100323
  15. CLOZAPINE [Suspect]
     Route: 048
     Dates: start: 20100422, end: 20100518
  16. CALCIUM CARBONATE [Concomitant]
     Dates: start: 20100320
  17. CLOZAPINE [Suspect]
     Route: 048
     Dates: start: 20100415, end: 20100421
  18. DIVALPROEX SODIUM [Concomitant]
     Dates: start: 20100521

REACTIONS (2)
  - CONVULSION [None]
  - GRANULOCYTOPENIA [None]
